FAERS Safety Report 10152776 (Version 4)
Quarter: 2014Q2

REPORT INFORMATION
  Report Type: Spontaneous
  Country: NL (occurrence: NL)
  Receive Date: 20140505
  Receipt Date: 20140616
  Transmission Date: 20141212
  Serious: Yes (Other)
  Sender: FDA-Public Use
  Company Number: NL-PFIZER INC-2014119941

PATIENT
  Age: 75 Year
  Sex: Female

DRUGS (3)
  1. ATORVASTATIN CALCIUM [Suspect]
     Dosage: UNK
     Dates: start: 2012
  2. NEBIVOLOL [Concomitant]
  3. SECTRAL [Concomitant]

REACTIONS (2)
  - Erysipelas [Recovered/Resolved]
  - Gait disturbance [Recovered/Resolved]
